FAERS Safety Report 22242308 (Version 3)
Quarter: 2023Q2

REPORT INFORMATION
  Report Type: Spontaneous
  Country: US (occurrence: US)
  Receive Date: 20230422
  Receipt Date: 20230518
  Transmission Date: 20230721
  Serious: Yes (Hospitalization)
  Sender: FDA-Public Use
  Company Number: US-UNITED THERAPEUTICS-UNT-2023-009953

PATIENT
  Sex: Male
  Weight: 92.971 kg

DRUGS (7)
  1. REMODULIN [Suspect]
     Active Substance: TREPROSTINIL
     Indication: Pulmonary arterial hypertension
     Dosage: 0.026 ?G/KG (PHARMACY PRE-FILLED WITH 3 ML PER CASSETTE AT PUMP RATE OF 29 MCL/HR), CONTINUING.
     Route: 058
  2. REMODULIN [Suspect]
     Active Substance: TREPROSTINIL
     Dosage: 0.027 ?G/KG, CONTINUING (PHARMACY PRE-FILLED WITH 3 ML PER CASSETTE; PUMP RATE OF 29 MCL PER HOUR)
     Route: 058
  3. REMODULIN [Suspect]
     Active Substance: TREPROSTINIL
     Dosage: 0.030 ?G/KG, CONTINUING (PHARMACY PRE-FILLED WITH 3 ML PER CASSETTE; PUMP RATE OF 32 MCL PER HOUR)
     Route: 058
  4. REMODULIN [Suspect]
     Active Substance: TREPROSTINIL
     Dosage: 0.031 ?G/KG, CONTINUING (PHARMACY PRE-FILLED WITH 3 ML PER CASSETTE; PUMP RATE OF 32 MCL PER HOUR)
     Route: 058
  5. REMODULIN [Suspect]
     Active Substance: TREPROSTINIL
     Dosage: UNK, CONTINUING
     Route: 058
     Dates: start: 20221214
  6. REMODULIN [Suspect]
     Active Substance: TREPROSTINIL
     Dosage: UNK, CONTINUING (PHARMACY PRE-FILLED WITH 3 ML PER CASSETTE; PUMP RATE OF 33 MCL/HOUR)
     Route: 058
  7. SILDENAFIL [Concomitant]
     Active Substance: SILDENAFIL
     Indication: Product used for unknown indication
     Dosage: UNK
     Route: 065

REACTIONS (6)
  - Fluid retention [Unknown]
  - Device failure [Unknown]
  - Somnolence [Unknown]
  - Seasonal allergy [Unknown]
  - Device leakage [Unknown]
  - Catheter site erythema [Unknown]
